FAERS Safety Report 23395759 (Version 2)
Quarter: 2024Q4

REPORT INFORMATION
  Report Type: Spontaneous
  Country: CA (occurrence: CA)
  Receive Date: 20240112
  Receipt Date: 20241030
  Transmission Date: 20250114
  Serious: Yes (Other)
  Sender: CELLTRION
  Company Number: CA-CELLTRION INC.-2024CA000329

PATIENT

DRUGS (14)
  1. YUFLYMA [Suspect]
     Active Substance: ADALIMUMAB-AATY
     Indication: Colitis ulcerative
     Dosage: 80 MG WEEKLY SC/ 1 EVERY 1 WEEKS
     Route: 058
     Dates: start: 20231216
  2. YUFLYMA [Suspect]
     Active Substance: ADALIMUMAB-AATY
     Dosage: 80 MG WEEKLY SC/ 1 EVERY 1 WEEKS
     Route: 058
     Dates: start: 20240105
  3. METFORMIN [Concomitant]
     Active Substance: METFORMIN HYDROCHLORIDE
  4. SYNTHROID [Concomitant]
     Active Substance: LEVOTHYROXINE SODIUM
  5. PERINDOPRIL [Concomitant]
     Active Substance: PERINDOPRIL
  6. RISEDRONATE SODIUM [Concomitant]
     Active Substance: RISEDRONATE SODIUM
  7. AMLODIPINE [Concomitant]
     Active Substance: AMLODIPINE BESYLATE
     Route: 065
  8. CITALOPRAM [Concomitant]
     Active Substance: CITALOPRAM
  9. SYMBICORT [Concomitant]
     Active Substance: BUDESONIDE\FORMOTEROL FUMARATE DIHYDRATE
     Dosage: UNK, PRN
  10. ROSUVASTATIN [Concomitant]
     Active Substance: ROSUVASTATIN
     Route: 058
  11. CELEFLOX [Concomitant]
     Dosage: UNK
     Route: 048
  12. CELEFLOX [Concomitant]
     Dosage: UNK
     Route: 054
  13. LORAZEPAM [Concomitant]
     Active Substance: LORAZEPAM
     Route: 065
  14. BUDESONIDE\FORMOTEROL FUMARATE [Concomitant]
     Active Substance: BUDESONIDE\FORMOTEROL FUMARATE

REACTIONS (3)
  - Colitis ulcerative [Recovering/Resolving]
  - COVID-19 [Recovered/Resolved]
  - Intentional product use issue [Recovered/Resolved]
